FAERS Safety Report 4934948-6 (Version None)
Quarter: 2006Q1

REPORT INFORMATION
  Report Type: 
  Country: None (occurrence: None)
  Receive Date: 20060306
  Receipt Date: 20060306
  Transmission Date: 20060701
  Serious: Yes (Other)
  Sender: FDA-Public Use
  Company Number: None

PATIENT
  Age: 50 Year
  Sex: Female
  Weight: 54.8852 kg

DRUGS (1)
  1. HABITROL [Suspect]
     Indication: SMOKING CESSATION THERAPY
     Dosage: 21 MG. DAILY CUTANEOUS
     Route: 003
     Dates: start: 20060213, end: 20060216

REACTIONS (4)
  - DRUG TOXICITY [None]
  - HEADACHE [None]
  - PRURITUS [None]
  - SLEEP DISORDER [None]
